FAERS Safety Report 23464165 (Version 2)
Quarter: 2024Q1

REPORT INFORMATION
  Report Type: Spontaneous
  Country: US (occurrence: US)
  Receive Date: 20240201
  Receipt Date: 20240320
  Transmission Date: 20240410
  Serious: Yes (Hospitalization)
  Sender: FDA-Public Use
  Company Number: US-BRISTOL-MYERS SQUIBB COMPANY-2024-014481

PATIENT
  Age: 53 Year
  Sex: Female

DRUGS (2)
  1. POMALYST [Suspect]
     Active Substance: POMALIDOMIDE
     Indication: Plasma cell myeloma recurrent
     Dosage: FREQUENCY: 1 TIME A DAY IN THE MORNING FOR 21 DAYS ON AND 7 DAYS OFF, DAILY X21D AND 7D OFF
     Route: 048
     Dates: start: 202312
  2. POMALYST [Suspect]
     Active Substance: POMALIDOMIDE
     Dosage: FREQUENCY: DAY ON 7 DAYS OFF 14 = 21 DAY
     Route: 048

REACTIONS (6)
  - Urinary tract infection [Unknown]
  - Arthropathy [Unknown]
  - Stomatitis [Unknown]
  - Arthritis infective [Unknown]
  - Cellulitis [Unknown]
  - Off label use [Unknown]

NARRATIVE: CASE EVENT DATE: 20240104
